FAERS Safety Report 5099494-0 (Version None)
Quarter: 2006Q3

REPORT INFORMATION
  Report Type: 
  Country: None (occurrence: None)
  Receive Date: 20060908
  Receipt Date: 20060831
  Transmission Date: 20061208
  Serious: Yes (Other)
  Sender: FDA-Public Use
  Company Number: PHBS2006BR13337

PATIENT
  Age: 39 Year
  Sex: Male
  Weight: 68 kg

DRUGS (1)
  1. TEGRETOL [Suspect]
     Indication: BIPOLAR DISORDER
     Dosage: 200 MG, TID
     Route: 048
     Dates: start: 20040101

REACTIONS (6)
  - DENTAL CARIES [None]
  - DRUG INEFFECTIVE [None]
  - FATIGUE [None]
  - MENTAL IMPAIRMENT [None]
  - SEXUAL DYSFUNCTION [None]
  - SLUGGISHNESS [None]
